FAERS Safety Report 25260414 (Version 1)
Quarter: 2025Q2

REPORT INFORMATION
  Report Type: Spontaneous
  Country: US (occurrence: US)
  Receive Date: 20250501
  Receipt Date: 20250501
  Transmission Date: 20250717
  Serious: Yes (Other)
  Sender: BAUSCH AND LOMB
  Company Number: US-BAUSCH-BL-2025-005435

PATIENT
  Age: 69 Year
  Sex: Female

DRUGS (3)
  1. ATIVAN [Suspect]
     Active Substance: LORAZEPAM
     Indication: Sleep disorder
     Route: 048
     Dates: start: 1994, end: 2024
  2. ATIVAN [Suspect]
     Active Substance: LORAZEPAM
     Indication: Anxiety
  3. GABAPENTIN [Concomitant]
     Active Substance: GABAPENTIN
     Indication: Product used for unknown indication

REACTIONS (7)
  - Suicidal ideation [Unknown]
  - Emotional disorder [Unknown]
  - Dyskinesia [Unknown]
  - Anxiety [Unknown]
  - Disease recurrence [Unknown]
  - Feeling drunk [Unknown]
  - Depression [Unknown]
